FAERS Safety Report 19795070 (Version 1)
Quarter: 2021Q3

REPORT INFORMATION
  Report Type: Spontaneous
  Country: BR (occurrence: BR)
  Receive Date: 20210907
  Receipt Date: 20210907
  Transmission Date: 20211014
  Serious: Yes (Other)
  Sender: FDA-Public Use
  Company Number: BR-AMGEN-BRASP2021134332

PATIENT
  Age: 34 Year
  Sex: Female
  Weight: 60.4 kg

DRUGS (8)
  1. CYCLOPHOSPHAMIDE. [Concomitant]
     Active Substance: CYCLOPHOSPHAMIDE
     Dosage: UNK
     Dates: start: 20210222, end: 20210526
  2. DEXAMETASON [DEXAMETHASONE] [Concomitant]
     Active Substance: DEXAMETHASONE
     Dosage: 10 MILLIGRAM, PRE?CHEMOTHERAPY
     Route: 042
     Dates: start: 20210730, end: 20210730
  3. DIPHENHYDRAMINE. [Concomitant]
     Active Substance: DIPHENHYDRAMINE
     Dosage: 50 MILLIGRAM, CYCLICAL, PRE?CHEMOTHERAPY
     Route: 042
     Dates: start: 20210730, end: 20210730
  4. ONDANSETRON [Concomitant]
     Active Substance: ONDANSETRON
     Dosage: 8 MILLIGRAM, CYCLICAL, PRE?CHEMOTHERAPY
     Route: 042
     Dates: start: 20210730, end: 20210730
  5. KANJINTI [Suspect]
     Active Substance: TRASTUZUMAB-ANNS
     Indication: BREAST CANCER
     Dosage: UNK
     Route: 065
  6. PACLITAXEL. [Concomitant]
     Active Substance: PACLITAXEL
     Indication: NEOPLASM
     Dosage: 127.2 MILLIGRAM, CYCLICAL
     Route: 042
     Dates: start: 20210730, end: 20210730
  7. PACLITAXEL. [Concomitant]
     Active Substance: PACLITAXEL
     Dosage: 100 MILLIGRAM, (6MG/ML) 16.7ML, CYCLICAL
     Route: 042
     Dates: start: 20210730, end: 20210730
  8. DOXORUBICINE [DOXORUBICIN] [Concomitant]
     Active Substance: DOXORUBICIN
     Dosage: UNK
     Dates: start: 20210222, end: 20210526

REACTIONS (1)
  - Periorbital cellulitis [Recovering/Resolving]

NARRATIVE: CASE EVENT DATE: 20210804
